FAERS Safety Report 6239929-0 (Version None)
Quarter: 2009Q2

REPORT INFORMATION
  Report Type: 
  Country: None (occurrence: None)
  Receive Date: 20090618
  Receipt Date: 20090618
  Transmission Date: 20091009
  Serious: Yes (Other)
  Sender: FDA-Public Use
  Company Number: None

PATIENT
  Age: 56 Year
  Sex: Female
  Weight: 57.6068 kg

DRUGS (1)
  1. SINGULAIR [Suspect]
     Indication: ASTHMA
     Dosage: 10MGONCE/DAY ONCE/DAY PO
     Route: 048

REACTIONS (6)
  - AGITATION [None]
  - DEATH OF RELATIVE [None]
  - DEPRESSION [None]
  - MENOPAUSE [None]
  - MENTAL DISORDER [None]
  - SUICIDAL IDEATION [None]
